FAERS Safety Report 9529502 (Version 1)
Quarter: 2013Q3

REPORT INFORMATION
  Report Type: Spontaneous
  Country: MY (occurrence: MY)
  Receive Date: 20130917
  Receipt Date: 20130917
  Transmission Date: 20140515
  Serious: Yes (Hospitalization)
  Sender: FDA-Public Use
  Company Number: MY-TEVA-431625ISR

PATIENT
  Age: 43 Year
  Sex: Female

DRUGS (8)
  1. FLUOROURACIL [Suspect]
     Indication: RECTAL ADENOCARCINOMA
     Dosage: 400 MG/M2 D1-2 Q2W
  2. FLUOROURACIL [Suspect]
     Indication: RECTAL ADENOCARCINOMA
     Dosage: 600 MG/M2 D1-2 Q2W
  3. CETUXIMAB [Suspect]
     Indication: RECTAL ADENOCARCINOMA
     Dosage: 500 MG/M2 D1 Q2W
  4. FOLINIC ACID [Suspect]
     Indication: RECTAL ADENOCARCINOMA
     Dosage: 200 MG/M2 D1-2 Q2W
  5. IRINOTECAN [Suspect]
     Indication: RECTAL ADENOCARCINOMA
     Dosage: 180 MG/M2 D1 Q2W
  6. UNASYN [Suspect]
     Indication: PARONYCHIA
     Dosage: 750 MILLIGRAM DAILY;
     Route: 048
  7. POTASSIUM PERMANGANATE [Concomitant]
     Indication: PARONYCHIA
     Dosage: FORM OF ADMIN: SOLUTION
     Route: 061
  8. GENTAMICIN [Concomitant]
     Indication: PARONYCHIA
     Route: 061

REACTIONS (4)
  - Diarrhoea [Unknown]
  - Vomiting [Unknown]
  - Paronychia [Recovered/Resolved]
  - Abdominal pain [Unknown]
